FAERS Safety Report 5843404-2 (Version None)
Quarter: 2008Q3

REPORT INFORMATION
  Report Type: 
  Country: None (occurrence: None)
  Receive Date: 20080813
  Receipt Date: 20080812
  Transmission Date: 20090109
  Serious: Yes (Other)
  Sender: FDA-Public Use
  Company Number: B0360706A

PATIENT
  Age: 45 Year
  Sex: Female

DRUGS (6)
  1. PAROXETINE HCL [Suspect]
     Route: 065
     Dates: start: 20020325
  2. ZOPICLONE [Concomitant]
     Dosage: 3.75MG UNKNOWN
     Route: 065
  3. RISPERIDONE [Concomitant]
     Dosage: .5MG TWICE PER DAY
     Route: 065
  4. AMITRIPTYLINE HCL [Concomitant]
     Route: 065
     Dates: start: 19950516
  5. CIPRAMIL [Concomitant]
     Route: 065
     Dates: start: 20011203
  6. COCODAMOL [Concomitant]

REACTIONS (24)
  - AFFECTIVE DISORDER [None]
  - AGITATION [None]
  - ANGER [None]
  - ANXIETY [None]
  - CONFUSIONAL STATE [None]
  - DEPRESSED MOOD [None]
  - DEPRESSION [None]
  - DISTURBANCE IN ATTENTION [None]
  - DIZZINESS [None]
  - DRUG WITHDRAWAL SYNDROME [None]
  - HYPOAESTHESIA [None]
  - INTENTIONAL SELF-INJURY [None]
  - LETHARGY [None]
  - MEMORY IMPAIRMENT [None]
  - MICTURITION DISORDER [None]
  - PARAESTHESIA [None]
  - POOR QUALITY SLEEP [None]
  - PSYCHOMOTOR HYPERACTIVITY [None]
  - SENSORY DISTURBANCE [None]
  - SLEEP DISORDER [None]
  - SUICIDAL IDEATION [None]
  - TEARFULNESS [None]
  - TREMOR [None]
  - VERTIGO [None]
